FAERS Safety Report 10205993 (Version 1)
Quarter: 2014Q2

REPORT INFORMATION
  Report Type: Spontaneous
  Country: US (occurrence: None)
  Receive Date: 20140527
  Receipt Date: 20140527
  Transmission Date: 20141212
  Serious: Yes (Hospitalization)
  Sender: FDA-Public Use
  Company Number: None

PATIENT
  Age: 56 Year
  Sex: Female

DRUGS (14)
  1. TACROLIMUS [Suspect]
     Indication: PROPHYLAXIS
     Route: 042
     Dates: start: 20120130, end: 20120212
  2. ACYCLOVIR [Concomitant]
  3. CEFEPIME [Concomitant]
  4. CHLORHEXADINE [Concomitant]
  5. DIBUCAINE TOPICAL [Concomitant]
  6. DOCUSATE [Concomitant]
  7. FLUCONAZOLE [Concomitant]
  8. GABAPENTIN [Concomitant]
  9. INSULIN ASPART [Concomitant]
  10. LIDOCAINE PATCH [Concomitant]
  11. LORAZEPAM [Concomitant]
  12. HYDROMORPHONE [Concomitant]
  13. VITAMIN E [Concomitant]
  14. CLOTRIMAZOLE TROCHES [Concomitant]

REACTIONS (5)
  - Pain in extremity [None]
  - Blister [None]
  - Skin ulcer [None]
  - Skin hyperpigmentation [None]
  - Skin hypopigmentation [None]
